FAERS Safety Report 6022918-9 (Version None)
Quarter: 2008Q4

REPORT INFORMATION
  Report Type: 
  Country: None (occurrence: None)
  Receive Date: 20081223
  Receipt Date: 20081211
  Transmission Date: 20090506
  Serious: Yes (Disabling)
  Sender: FDA-Public Use
  Company Number: 004900

PATIENT
  Age: 80 Year
  Sex: Male
  Weight: 75 kg

DRUGS (4)
  1. PLETAL [Suspect]
     Indication: CEREBRAL INFARCTION
     Dosage: 100 MG, BID
     Route: 048
     Dates: start: 20080806, end: 20080811
  2. PLETAL [Suspect]
     Indication: CEREBRAL INFARCTION
     Dosage: 100 MG, BID
     Route: 048
     Dates: start: 20080923
  3. RADICUT (EDARAVONE) INJECTION [Concomitant]
  4. SLOVASTAN (ARGATROBAN) INJECTION [Concomitant]

REACTIONS (3)
  - CEREBRAL HAEMATOMA [None]
  - DUODENAL ULCER HAEMORRHAGE [None]
  - HAEMORRHAGIC CEREBRAL INFARCTION [None]
